FAERS Safety Report 5289072-2 (Version None)
Quarter: 2007Q1

REPORT INFORMATION
  Report Type: 
  Country: None (occurrence: None)
  Receive Date: 20070116
  Receipt Date: 20051128
  Transmission Date: 20070707
  Serious: No
  Sender: FDA-Public Use
  Company Number: FEI2005-3112

PATIENT
  Age: 24 Year
  Sex: Female
  Weight: 85.2762 kg

DRUGS (3)
  1. INTRAUTERINE COPPER CONTRACEPTIVE [Suspect]
     Indication: CONTRACEPTION
     Dosage: INTRA-UTERINE
     Route: 015
     Dates: start: 20010401
  2. PRENATAL VITAMINS (PRENATAL VITAMINS /01549301/) [Concomitant]
  3. TUMS (CALCIUM CARBONATE) [Concomitant]

REACTIONS (6)
  - ABDOMINAL DISCOMFORT [None]
  - ABORTION SPONTANEOUS [None]
  - IUCD COMPLICATION [None]
  - METRORRHAGIA [None]
  - UNINTENDED PREGNANCY [None]
  - VAGINAL HAEMORRHAGE [None]
